FAERS Safety Report 8886219 (Version 1)
Quarter: 2012Q4

REPORT INFORMATION
  Report Type: 
  Country: IN (occurrence: IN)
  Receive Date: 20121105
  Receipt Date: 20121105
  Transmission Date: 20130627
  Serious: Yes (Other)
  Sender: FDA-Public Use
  Company Number: IN-BAYER-2012-113379

PATIENT
  Sex: Female

DRUGS (3)
  1. ACETYLSALICYLIC ACID({=100 MG) [Suspect]
     Indication: CEREBRAL INFARCTION
     Dosage: 75 mg, QD
     Route: 048
  2. ACETYLSALICYLIC ACID({=100 MG) [Suspect]
     Indication: CARDIOVASCULAR EVENT PROPHYLAXIS
  3. PREDNISOLONE [Suspect]
     Indication: TAKAYASU^S DISEASE
     Dosage: 40 mg, QD
     Route: 048

REACTIONS (2)
  - Exposure during pregnancy [None]
  - Premature delivery [Recovered/Resolved]
